FAERS Safety Report 5980538-6 (Version None)
Quarter: 2008Q4

REPORT INFORMATION
  Report Type: 
  Country: None (occurrence: None)
  Receive Date: 20081205
  Receipt Date: 20080115
  Transmission Date: 20090506
  Serious: No
  Sender: FDA-Public Use
  Company Number: A0703278A

PATIENT
  Age: 54 Year
  Sex: Male

DRUGS (2)
  1. COMMIT [Suspect]
  2. COMMIT [Suspect]

REACTIONS (5)
  - ABDOMINAL DISCOMFORT [None]
  - DYSPEPSIA [None]
  - HICCUPS [None]
  - HYPERCHLORHYDRIA [None]
  - INTENTIONAL DRUG MISUSE [None]
